FAERS Safety Report 25895258 (Version 1)
Quarter: 2025Q4

REPORT INFORMATION
  Report Type: Spontaneous
  Country: US (occurrence: None)
  Receive Date: 20251008
  Receipt Date: 20251008
  Transmission Date: 20260118
  Serious: Yes (Hospitalization)
  Sender: FDA-CTU
  Company Number: None

PATIENT
  Age: 67 Year
  Sex: Female
  Weight: 88.1 kg

DRUGS (2)
  1. DARATUMUMAB\HYALURONIDASE-FIHJ [Suspect]
     Active Substance: DARATUMUMAB\HYALURONIDASE-FIHJ
     Dates: end: 20250917
  2. DEXAMETHASONE [Suspect]
     Active Substance: DEXAMETHASONE
     Dates: end: 20250917

REACTIONS (8)
  - Weight decreased [None]
  - Pulmonary mass [None]
  - Pulmonary mass [None]
  - Fractured sacrum [None]
  - Skin mass [None]
  - Mental status changes [None]
  - Neoplasm malignant [None]
  - Haemoglobin decreased [None]

NARRATIVE: CASE EVENT DATE: 20250924
